FAERS Safety Report 8623742-0 (Version None)
Quarter: 2012Q3

REPORT INFORMATION
  Report Type: 
  Country: None (occurrence: None)
  Receive Date: 20120827
  Receipt Date: 20120816
  Transmission Date: 20120928
  Serious: Yes (Other)
  Sender: FDA-Public Use
  Company Number: FR-ASTRAZENECA-2012SE17858

PATIENT
  Age: 24550 Day
  Sex: Male

DRUGS (7)
  1. SEROQUEL [Suspect]
     Route: 048
     Dates: start: 20111223, end: 20120301
  2. DEPAKOTE [Concomitant]
     Route: 048
  3. LITHIUM CARBONATE [Concomitant]
     Route: 048
     Dates: start: 20090901
  4. LORAZEPAM [Concomitant]
     Dosage: 1 TO 4 MG PER DAY
     Route: 048
     Dates: start: 20090113
  5. LEVOTHYROXINE SODIUM [Concomitant]
     Indication: HYPOTHYROIDISM
     Route: 048
  6. LAMICTAL [Concomitant]
     Route: 048
     Dates: start: 20090713
  7. SEROQUEL [Suspect]
     Indication: BIPOLAR I DISORDER
     Dosage: DOSE PROGRESSIVELY INCREASED TO 300 MG PER DAY
     Route: 048
     Dates: start: 20111115, end: 20111222

REACTIONS (3)
  - HYPOMANIA [None]
  - HERPES OPHTHALMIC [None]
  - DRY EYE [None]
